FAERS Safety Report 8268200-0 (Version None)
Quarter: 2012Q2

REPORT INFORMATION
  Report Type: 
  Country: None (occurrence: None)
  Receive Date: 20120409
  Receipt Date: 20120402
  Transmission Date: 20120825
  Serious: Yes (Hospitalization, Other)
  Sender: FDA-Public Use
  Company Number: US-AMGEN-USASP2012021071

PATIENT
  Sex: Male
  Weight: 71.655 kg

DRUGS (2)
  1. ALLOPURINOL [Concomitant]
     Indication: PROPHYLAXIS
     Dosage: 100 MG, UNK
     Route: 048
  2. PROCRIT [Suspect]
     Indication: COLD AGGLUTININS
     Dosage: 40000 IU, QWK
     Route: 058
     Dates: start: 19970101

REACTIONS (4)
  - CEREBROVASCULAR ACCIDENT [None]
  - CATHETERISATION CARDIAC [None]
  - HEART RATE INCREASED [None]
  - INJECTION SITE PAIN [None]
